FAERS Safety Report 16580121 (Version 1)
Quarter: 2019Q3

REPORT INFORMATION
  Report Type: Report from Study
  Country: NL (occurrence: NL)
  Receive Date: 20190716
  Receipt Date: 20190716
  Transmission Date: 20191004
  Serious: Yes (Hospitalization)
  Sender: FDA-Public Use
  Company Number: NL-MYLANLABS-2019M1063976

PATIENT
  Age: 75 Year
  Sex: Female
  Weight: 100 kg

DRUGS (4)
  1. VALSARTAN. [Suspect]
     Active Substance: VALSARTAN
     Dosage: 200 MG, BID
     Route: 048
     Dates: start: 20110907, end: 20130723
  2. PHENPROCOUMON [Suspect]
     Active Substance: PHENPROCOUMON
     Indication: PROPHYLAXIS
     Dosage: 3 MG, (FREQUENCY DEPENDED ON INR)
     Dates: start: 20071119
  3. VALSARTAN. [Suspect]
     Active Substance: VALSARTAN
     Dosage: 200 MILLIGRAM BID
     Route: 048
     Dates: start: 20130807
  4. ACETYLSALICYLIC ACID [Suspect]
     Active Substance: ASPIRIN
     Indication: PRODUCT USED FOR UNKNOWN INDICATION
     Dosage: 80 MG, OD
     Dates: start: 20040211, end: 20130723

REACTIONS (2)
  - Anaemia [Recovering/Resolving]
  - Cardiac failure [Recovered/Resolved]

NARRATIVE: CASE EVENT DATE: 20130723
